FAERS Safety Report 6318578-X (Version None)
Quarter: 2009Q3

REPORT INFORMATION
  Report Type: 
  Country: None (occurrence: None)
  Receive Date: 20090821
  Receipt Date: 20090818
  Transmission Date: 20100115
  Serious: Yes (Death, Other)
  Sender: FDA-Public Use
  Company Number: PHHY2009JP24363

PATIENT
  Sex: Male
  Weight: 82 kg

DRUGS (20)
  1. STI571/CGP57148B T35717+TAB [Suspect]
     Indication: ACUTE LYMPHOCYTIC LEUKAEMIA
     Dosage: 400 MG/DAY
     Route: 048
     Dates: start: 20080830, end: 20080912
  2. STI571/CGP57148B T35717+TAB [Suspect]
     Dosage: 400 MG/DAY
     Route: 048
     Dates: start: 20080925, end: 20080928
  3. STI571/CGP57148B T35717+TAB [Suspect]
     Dosage: 600 MG/DAY
     Route: 048
     Dates: start: 20080929, end: 20081006
  4. STI571/CGP57148B T35717+TAB [Suspect]
     Dosage: 200 MG/DAY
     Route: 048
     Dates: start: 20081023, end: 20081030
  5. STI571/CGP57148B T35717+TAB [Suspect]
     Dosage: 400 MG/DAY
     Route: 048
     Dates: start: 20081031, end: 20081104
  6. STI571/CGP57148B T35717+TAB [Suspect]
     Dosage: 200 MG/DAY
     Route: 048
     Dates: start: 20081105, end: 20081129
  7. HYPER-CVAD [Suspect]
     Dosage: UNK
     Dates: start: 20081118
  8. ALOSITOL [Concomitant]
     Indication: ACUTE LYMPHOCYTIC LEUKAEMIA
     Dosage: 300 MG, UNK
     Route: 048
     Dates: start: 20080830, end: 20080907
  9. MYSLEE [Concomitant]
     Dosage: 5 MG, UNK
     Route: 048
     Dates: start: 20080830, end: 20081128
  10. OLMETEC [Concomitant]
     Dosage: 40 MG, UNK
     Route: 048
     Dates: start: 20080830, end: 20080906
  11. MAGLAX [Concomitant]
     Dosage: 990 MG, UNK
     Route: 048
     Dates: start: 20080830, end: 20080928
  12. LAXOBERON [Concomitant]
     Dosage: UNK
     Route: 048
     Dates: start: 20080830, end: 20080906
  13. OZEX [Concomitant]
     Indication: PROPHYLAXIS
     Dosage: 450 MG, UNK
     Route: 048
     Dates: start: 20080904, end: 20081109
  14. DIFLUCAN [Concomitant]
     Indication: PROPHYLAXIS
     Dosage: 200 MG, UNK
     Route: 048
     Dates: start: 20080904, end: 20080905
  15. BAKTAR [Concomitant]
     Indication: PROPHYLAXIS
     Dosage: 4 DF, UNK
     Route: 048
     Dates: start: 20080904, end: 20080920
  16. SELBEX [Concomitant]
     Indication: PROPHYLAXIS
     Dosage: 100 MG
     Route: 048
     Dates: start: 20080911, end: 20080911
  17. KYTRIL [Concomitant]
     Indication: PROPHYLAXIS
     Dosage: 3 MG, UNK
     Route: 042
     Dates: start: 20080827, end: 20081121
  18. ORGARAN [Concomitant]
     Dosage: 2 ML, UNK
     Route: 042
     Dates: start: 20080828, end: 20080901
  19. PLATELETS [Concomitant]
     Indication: ACUTE LYMPHOCYTIC LEUKAEMIA
     Dosage: 10 IU, UNK
     Route: 042
     Dates: start: 20080830, end: 20081129
  20. HUMAN RED BLOOD CELLS [Concomitant]
     Indication: ACUTE LYMPHOCYTIC LEUKAEMIA
     Dosage: 2 IU, UNK
     Route: 042
     Dates: start: 20080830, end: 20081129

REACTIONS (12)
  - BACK PAIN [None]
  - BLOOD PRESSURE DECREASED [None]
  - BRONCHOPULMONARY ASPERGILLOSIS [None]
  - C-REACTIVE PROTEIN INCREASED [None]
  - CARDIAC ARREST [None]
  - FEELING HOT [None]
  - HAEMODYNAMIC INSTABILITY [None]
  - HEART RATE DECREASED [None]
  - PYREXIA [None]
  - SEPSIS [None]
  - SEPTIC SHOCK [None]
  - STAPHYLOCOCCAL INFECTION [None]
